FAERS Safety Report 12645708 (Version 1)
Quarter: 2016Q3

REPORT INFORMATION
  Report Type: Spontaneous
  Country: US (occurrence: US)
  Receive Date: 20160811
  Receipt Date: 20160811
  Transmission Date: 20161109
  Serious: No
  Sender: FDA-Public Use
  Company Number: US-ENDO PHARMACEUTICALS INC.-2015-002618

PATIENT
  Sex: Female

DRUGS (7)
  1. PREDNISONE TABLETS [Suspect]
     Active Substance: PREDNISONE
     Indication: SPINAL COLUMN STENOSIS
     Dosage: 12 MG, UNKNOWN
     Route: 065
  2. PREVACID [Concomitant]
     Active Substance: LANSOPRAZOLE
     Indication: GASTROOESOPHAGEAL REFLUX DISEASE
  3. CARISOPRODOL TABLETS 350MG [Concomitant]
     Active Substance: CARISOPRODOL
     Indication: SPINAL DISORDER
  4. SYNTHROID [Concomitant]
     Active Substance: LEVOTHYROXINE SODIUM
     Indication: HYPOTHYROIDISM
  5. CORGARD [Concomitant]
     Active Substance: NADOLOL
     Indication: MITRAL VALVE PROLAPSE
  6. PREDNISONE TABLETS [Suspect]
     Active Substance: PREDNISONE
     Indication: INTERVERTEBRAL DISC PROTRUSION
  7. NADOLOL. [Concomitant]
     Active Substance: NADOLOL
     Indication: MITRAL VALVE PROLAPSE

REACTIONS (3)
  - Gastric ulcer [Recovered/Resolved]
  - Cataract [Recovered/Resolved]
  - Off label use [Recovered/Resolved]

NARRATIVE: CASE EVENT DATE: 2008
